FAERS Safety Report 5569061-0 (Version None)
Quarter: 2007Q4

REPORT INFORMATION
  Report Type: 
  Country: None (occurrence: None)
  Receive Date: 20071220
  Receipt Date: 20070608
  Transmission Date: 20080405
  Serious: No
  Sender: FDA-Public Use
  Company Number: A0655079A

PATIENT
  Sex: Male

DRUGS (1)
  1. AVODART [Suspect]
     Indication: DRUG USE FOR UNKNOWN INDICATION
     Route: 065

REACTIONS (4)
  - DYSURIA [None]
  - GYNAECOMASTIA [None]
  - LIBIDO DECREASED [None]
  - SEMEN VOLUME DECREASED [None]
